FAERS Safety Report 9699126 (Version 1)
Quarter: 2013Q4

REPORT INFORMATION
  Report Type: Spontaneous
  Country: US (occurrence: US)
  Receive Date: 20131120
  Receipt Date: 20131120
  Transmission Date: 20140711
  Serious: No
  Sender: FDA-Public Use
  Company Number: US-009507513-1311USA000304

PATIENT
  Sex: Female

DRUGS (3)
  1. NASONEX [Suspect]
     Indication: RHINITIS ALLERGIC
     Dosage: 50 MICROGRAM, ONE SPRAY EACH NOSTRIL BID
     Route: 045
     Dates: start: 2008
  2. SUDAFED [Concomitant]
  3. DEXILANT [Concomitant]

REACTIONS (2)
  - Panic attack [Unknown]
  - Product taste abnormal [Unknown]
